FAERS Safety Report 21321332 (Version 1)
Quarter: 2022Q3

REPORT INFORMATION
  Report Type: Spontaneous
  Country: CN (occurrence: CN)
  Receive Date: 20220912
  Receipt Date: 20220912
  Transmission Date: 20221026
  Serious: Yes (Hospitalization)
  Sender: FDA-Public Use
  Company Number: None

PATIENT
  Age: 66 Year
  Sex: Female
  Weight: 60 kg

DRUGS (6)
  1. CYCLOPHOSPHAMIDE [Suspect]
     Active Substance: CYCLOPHOSPHAMIDE
     Indication: Breast cancer female
     Dosage: 960 MG, QD, D1, DILUTED WITH 0.9% SODIUM CHLORIDE 500ML
     Route: 041
     Dates: start: 20220813, end: 20220813
  2. SODIUM CHLORIDE [Suspect]
     Active Substance: SODIUM CHLORIDE
     Indication: Medication dilution
     Dosage: 500 ML, QD, D1, DILUTED IN CYCLOPHOSPHAMIDE 960 MG
     Route: 041
     Dates: start: 20220813, end: 20220813
  3. DEXTROSE MONOHYDRATE [Suspect]
     Active Substance: DEXTROSE MONOHYDRATE
     Indication: Medication dilution
     Dosage: 80 ML, QD, D1-2, DILUTED IN EPIRUBICIN HYDROCHLORIDE 80 MG
     Route: 041
     Dates: start: 20220813, end: 20220814
  4. EPIRUBICIN HYDROCHLORIDE [Suspect]
     Active Substance: EPIRUBICIN HYDROCHLORIDE
     Indication: Breast cancer female
     Dosage: 80 MG, QD, D1-2, DILUTED WITH 5% GLUCOSE 80ML
     Route: 041
     Dates: start: 20220813, end: 20220814
  5. BETAMETHASONE SODIUM PHOSPHATE [Concomitant]
     Active Substance: BETAMETHASONE SODIUM PHOSPHATE
     Indication: Drug therapy
     Dosage: 5.26 MG, QD
     Route: 041
     Dates: start: 20220813, end: 20220813
  6. RANITIDINE HYDROCHLORIDE [Concomitant]
     Active Substance: RANITIDINE HYDROCHLORIDE
     Indication: Gastrointestinal disorder prophylaxis
     Dosage: 150 MG, QD
     Route: 041
     Dates: start: 20220813, end: 20220813

REACTIONS (4)
  - Mucosal ulceration [Recovering/Resolving]
  - White blood cell count decreased [Recovering/Resolving]
  - Asthenia [Recovering/Resolving]
  - Pyrexia [Recovering/Resolving]

NARRATIVE: CASE EVENT DATE: 20220821
